FAERS Safety Report 20654897 (Version 3)
Quarter: 2022Q3

REPORT INFORMATION
  Report Type: Spontaneous
  Country: TW (occurrence: TW)
  Receive Date: 20220330
  Receipt Date: 20220707
  Transmission Date: 20221027
  Serious: Yes (Death)
  Sender: FDA-Public Use
  Company Number: TW-ELI_LILLY_AND_COMPANY-TW202203011587

PATIENT
  Sex: Male

DRUGS (2)
  1. OLUMIANT [Suspect]
     Active Substance: BARICITINIB
     Indication: Dermatitis atopic
     Dosage: UNK UNK, QOD
     Route: 048
     Dates: start: 202202
  2. OLUMIANT [Suspect]
     Active Substance: BARICITINIB
     Dosage: HALF PILL, DAILY
     Route: 048

REACTIONS (6)
  - Coronary artery disease [Fatal]
  - Cardiogenic shock [Fatal]
  - Infection [Fatal]
  - Dyslipidaemia [Unknown]
  - Wrong technique in product usage process [Unknown]
  - Inappropriate schedule of product administration [Unknown]
